FAERS Safety Report 16786973 (Version 3)
Quarter: 2020Q1

REPORT INFORMATION
  Report Type: Spontaneous
  Country: US (occurrence: US)
  Receive Date: 20190909
  Receipt Date: 20200320
  Transmission Date: 20200409
  Serious: No
  Sender: FDA-Public Use
  Company Number: US-SA-2019SA244588

PATIENT
  Age: 77 Year
  Sex: Male

DRUGS (2)
  1. LANTUS SOLOSTAR [Suspect]
     Active Substance: INSULIN GLARGINE
     Dosage: 30 IU, QD
     Route: 065
  2. LANTUS SOLOSTAR [Suspect]
     Active Substance: INSULIN GLARGINE
     Indication: TYPE 2 DIABETES MELLITUS
     Dosage: 22 U AM, 6 U PM
     Route: 065

REACTIONS (6)
  - Hypoacusis [Unknown]
  - Inappropriate schedule of product administration [Unknown]
  - Incorrect dose administered by product [Unknown]
  - Injury associated with device [Unknown]
  - Product dose omission [Unknown]
  - Device operational issue [Unknown]
